FAERS Safety Report 7335403-9 (Version None)
Quarter: 2011Q1

REPORT INFORMATION
  Report Type: 
  Country: None (occurrence: None)
  Receive Date: 20110307
  Receipt Date: 20110222
  Transmission Date: 20110831
  Serious: Yes (Other)
  Sender: FDA-Public Use
  Company Number: PHHY2011GB14120

PATIENT
  Age: 70 Year
  Sex: Male

DRUGS (6)
  1. VERAPAMIL HYDROCHLORIDE [Concomitant]
  2. NICORANDIL [Concomitant]
  3. NITROGLYCERIN [Concomitant]
  4. SIMVASTATIN [Suspect]
     Dosage: UNK
     Dates: start: 20081028
  5. RAMIPRIL [Concomitant]
  6. AMLODIPINE [Concomitant]

REACTIONS (2)
  - DYSPNOEA [None]
  - PULMONARY FIBROSIS [None]
